FAERS Safety Report 11643653 (Version 1)
Quarter: 2015Q4

REPORT INFORMATION
  Report Type: Spontaneous
  Country: US (occurrence: US)
  Receive Date: 20151020
  Receipt Date: 20151020
  Transmission Date: 20160304
  Serious: No
  Sender: FDA-Public Use
  Company Number: US-009507513-1510USA004786

PATIENT
  Age: 48 Year
  Sex: Female

DRUGS (1)
  1. NASONEX [Suspect]
     Active Substance: MOMETASONE FUROATE
     Indication: RHINITIS ALLERGIC
     Dosage: 50 MCG OF MOMETASONE FUROATE/2 SPRAYS IN EACH NOSTRIL ONCE A DAY
     Route: 045
     Dates: start: 201404

REACTIONS (4)
  - Insomnia [Unknown]
  - Dyspnoea [Not Recovered/Not Resolved]
  - Drug dose omission [Unknown]
  - Adverse event [Unknown]

NARRATIVE: CASE EVENT DATE: 2015
